FAERS Safety Report 17288758 (Version 1)
Quarter: 2020Q1

REPORT INFORMATION
  Report Type: Spontaneous
  Country: US (occurrence: US)
  Receive Date: 20200120
  Receipt Date: 20200120
  Transmission Date: 20200409
  Serious: No
  Sender: FDA-Public Use
  Company Number: US-INSMED, INC.-US-INS-19-03678

PATIENT
  Sex: Female
  Weight: 47.67 kg

DRUGS (3)
  1. ALBUTEROL. [Concomitant]
     Active Substance: ALBUTEROL
     Indication: PRODUCT USED FOR UNKNOWN INDICATION
  2. ARIKAYCE [Suspect]
     Active Substance: AMIKACIN
     Indication: MYCOBACTERIUM AVIUM COMPLEX INFECTION
     Route: 055
     Dates: start: 20190905
  3. LAMIRA NEBULIZER SYSTEM [Suspect]
     Active Substance: DEVICE

REACTIONS (6)
  - Weight decreased [Unknown]
  - Fatigue [Unknown]
  - Device issue [Unknown]
  - Dysphonia [Unknown]
  - Product dose omission [Unknown]
  - Chest discomfort [Unknown]

NARRATIVE: CASE EVENT DATE: 2019
